FAERS Safety Report 4948007-X (Version None)
Quarter: 2006Q1

REPORT INFORMATION
  Report Type: 
  Country: None (occurrence: None)
  Receive Date: 20060320
  Receipt Date: 20060123
  Transmission Date: 20060701
  Serious: Yes (Hospitalization)
  Sender: FDA-Public Use
  Company Number: US-MERCK-0601USA02649

PATIENT
  Age: 83 Year
  Sex: Male
  Weight: 80 kg

DRUGS (6)
  1. VIOXX [Suspect]
     Indication: ARTHRITIS
     Route: 048
     Dates: start: 20020601, end: 20040901
  2. VIOXX [Suspect]
     Indication: PAIN
     Route: 048
     Dates: start: 20020601, end: 20040901
  3. PREVALITE [Concomitant]
     Route: 065
  4. ZANAFLEX [Concomitant]
     Route: 065
  5. FAMOTIDINE [Concomitant]
     Route: 065
  6. ZESTRIL [Concomitant]
     Route: 065

REACTIONS (2)
  - CEREBROVASCULAR ACCIDENT [None]
  - CEREBROVASCULAR DISORDER [None]
